FAERS Safety Report 23205247 (Version 1)
Quarter: 2023Q4

REPORT INFORMATION
  Report Type: Spontaneous
  Country: HK (occurrence: HK)
  Receive Date: 20231120
  Receipt Date: 20231120
  Transmission Date: 20240110
  Serious: Yes (Other)
  Sender: FDA-Public Use
  Company Number: HK-PFIZER INC-202300372661

PATIENT
  Sex: Female

DRUGS (2)
  1. FENTANYL CITRATE [Suspect]
     Active Substance: FENTANYL CITRATE
     Indication: Analgesic therapy
     Dosage: 25 UG
     Route: 037
  2. BUPIVACAINE [Concomitant]
     Active Substance: BUPIVACAINE
     Indication: Analgesic therapy
     Dosage: 2.5 MG
     Route: 037

REACTIONS (2)
  - Maternal exposure during delivery [Unknown]
  - Uterine hyperstimulation [Unknown]
